FAERS Safety Report 4783301-7 (Version None)
Quarter: 2005Q3

REPORT INFORMATION
  Report Type: 
  Country: None (occurrence: None)
  Receive Date: 20050929
  Receipt Date: 20050923
  Transmission Date: 20060218
  Serious: Yes (Death, Hospitalization)
  Sender: FDA-Public Use
  Company Number: US-MERCK-0509USA03601

PATIENT
  Age: 80 Year
  Sex: Male

DRUGS (2)
  1. VIOXX [Suspect]
     Indication: ARTHRALGIA
     Route: 048
     Dates: start: 20030101, end: 20040101
  2. CELEBREX [Concomitant]
     Indication: ARTHRALGIA
     Route: 048
     Dates: start: 20040101

REACTIONS (1)
  - MYOCARDIAL INFARCTION [None]
